FAERS Safety Report 11488813 (Version 1)
Quarter: 2015Q3

REPORT INFORMATION
  Report Type: Spontaneous
  Country: US (occurrence: US)
  Receive Date: 20150910
  Receipt Date: 20150910
  Transmission Date: 20151125
  Serious: No
  Sender: FDA-Public Use
  Company Number: US-ROCHE-1448866

PATIENT
  Age: 70 Year
  Sex: Female

DRUGS (1)
  1. PEGASYS [Suspect]
     Active Substance: PEGINTERFERON ALFA-2A
     Indication: HEPATITIS C
     Route: 058
     Dates: end: 20140810

REACTIONS (4)
  - Angular cheilitis [Unknown]
  - Feeding disorder [Unknown]
  - Asthenia [Unknown]
  - Nausea [Unknown]
